FAERS Safety Report 8892693 (Version 1)
Quarter: 2012Q4

REPORT INFORMATION
  Report Type: Spontaneous
  Country: US (occurrence: None)
  Receive Date: 20121105
  Receipt Date: 20121105
  Transmission Date: 20130627
  Serious: Yes (Life-Threatening)
  Sender: FDA-Public Use
  Company Number: None

PATIENT
  Age: 42 Year
  Sex: Female
  Weight: 49.9 kg

DRUGS (2)
  1. METHADONE [Suspect]
     Indication: PAIN MANAGEMENT
     Dosage: 4 pills per day everyday po
     Route: 048
     Dates: start: 20070101, end: 20121103
  2. METHADONE [Suspect]
     Indication: DRUG ADDICTION
     Dosage: Same/differing brands

REACTIONS (4)
  - Product quality issue [None]
  - Product substitution issue [None]
  - Drug withdrawal syndrome [None]
  - Malaise [None]
